FAERS Safety Report 17688372 (Version 1)
Quarter: 2020Q2

REPORT INFORMATION
  Report Type: Spontaneous
  Country: US (occurrence: US)
  Receive Date: 20200420
  Receipt Date: 20200420
  Transmission Date: 20200714
  Serious: Yes (Hospitalization)
  Sender: FDA-Public Use
  Company Number: None

PATIENT
  Age: 67 Year
  Sex: Female

DRUGS (2)
  1. PRALUENT [Suspect]
     Active Substance: ALIROCUMAB
     Indication: CAROTID ARTERY STENOSIS
     Dosage: ?          OTHER FREQUENCY:Q TWO WEEKS;?
     Route: 058
     Dates: start: 20180921
  2. METOPROLOL TARTRATE. [Concomitant]
     Active Substance: METOPROLOL TARTRATE

REACTIONS (2)
  - Blood test abnormal [None]
  - Blood cholesterol decreased [None]

NARRATIVE: CASE EVENT DATE: 20200409
